FAERS Safety Report 19245725 (Version 1)
Quarter: 2021Q2

REPORT INFORMATION
  Report Type: Report from Study
  Country: IT (occurrence: IT)
  Receive Date: 20210511
  Receipt Date: 20210511
  Transmission Date: 20210717
  Serious: Yes (Other)
  Sender: FDA-Public Use
  Company Number: IT-BAXTER-2021BAX009654

PATIENT
  Age: 47 Year
  Sex: Female

DRUGS (3)
  1. FLUOROURACIL HIKMA [Suspect]
     Active Substance: FLUOROURACIL
     Indication: BREAST CANCER
     Route: 042
     Dates: start: 20210107, end: 20210315
  2. ENDOXAN BAXTER [Suspect]
     Active Substance: CYCLOPHOSPHAMIDE
     Indication: BREAST CANCER
     Route: 065
     Dates: start: 20210107, end: 20210315
  3. EPIRUBICIN TEVA [Suspect]
     Active Substance: EPIRUBICIN
     Indication: BREAST CANCER
     Route: 065
     Dates: start: 20210107, end: 20210315

REACTIONS (12)
  - Asthenia [Recovering/Resolving]
  - Dermatitis acneiform [Recovering/Resolving]
  - Dry mouth [Recovering/Resolving]
  - Alopecia [Recovering/Resolving]
  - Dysgeusia [Recovering/Resolving]
  - Leukopenia [Recovering/Resolving]
  - Constipation [Recovering/Resolving]
  - Nausea [Recovering/Resolving]
  - Anaemia [Recovering/Resolving]
  - Vomiting [Recovering/Resolving]
  - Hyperbilirubinaemia [Recovering/Resolving]
  - Skin tightness [Recovering/Resolving]

NARRATIVE: CASE EVENT DATE: 20210107
